FAERS Safety Report 7938696-X (Version None)
Quarter: 2011Q4

REPORT INFORMATION
  Report Type: 
  Country: None (occurrence: None)
  Receive Date: 20111124
  Receipt Date: 20111117
  Transmission Date: 20120403
  Serious: Yes (Hospitalization, Other)
  Sender: FDA-Public Use
  Company Number: US-BRISTOL-MYERS SQUIBB COMPANY-16188864

PATIENT
  Age: 76 Year
  Sex: Female
  Weight: 64 kg

DRUGS (2)
  1. LEUKINE [Suspect]
     Indication: MALIGNANT MELANOMA
     Route: 058
     Dates: start: 20110804, end: 20110919
  2. IPILIMUMAB [Suspect]
     Indication: MALIGNANT MELANOMA
     Route: 042
     Dates: start: 20110804, end: 20110916

REACTIONS (6)
  - EMBOLISM [None]
  - PLATELET COUNT DECREASED [None]
  - LARGE INTESTINE PERFORATION [None]
  - LARGE INTESTINAL HAEMORRHAGE [None]
  - RASH [None]
  - DIARRHOEA [None]
